FAERS Safety Report 24395846 (Version 2)
Quarter: 2024Q4

REPORT INFORMATION
  Report Type: Spontaneous
  Country: IT (occurrence: IT)
  Receive Date: 20241004
  Receipt Date: 20241025
  Transmission Date: 20250115
  Serious: Yes (Other)
  Sender: TEVA
  Company Number: None

PATIENT
  Age: 36 Year
  Sex: Male

DRUGS (3)
  1. PRAVASTATIN [Suspect]
     Active Substance: PRAVASTATIN
     Indication: Dyslipidaemia
     Dosage: 20 MG 3 TIMES A WEEK, PRAVASTATINA
     Route: 048
     Dates: start: 20211215, end: 2022
  2. OMEGA 3 [Concomitant]
     Active Substance: CAPSAICIN
     Indication: Hypertriglyceridaemia
     Dosage: 1000MG 3 TABLETS / DAY, OMEGA 3 POLYUNSATURATED
     Route: 048
  3. KETOROLAC TROMETHAMINE [Concomitant]
     Active Substance: KETOROLAC TROMETHAMINE
     Indication: Pain
     Dosage: 1 FL AS NEEDED
     Route: 030
     Dates: start: 2021

REACTIONS (4)
  - Dizziness [Recovered/Resolved]
  - Vertigo [Recovered/Resolved]
  - Confusional state [Recovered/Resolved]
  - Presyncope [Recovered/Resolved]

NARRATIVE: CASE EVENT DATE: 20211224
